FAERS Safety Report 6019581-X (Version None)
Quarter: 2008Q4

REPORT INFORMATION
  Report Type: 
  Country: None (occurrence: None)
  Receive Date: 20081224
  Receipt Date: 20081218
  Transmission Date: 20090506
  Serious: Yes (Other)
  Sender: FDA-Public Use
  Company Number: ES-AMGEN-UK324504

PATIENT
  Age: 60 Year
  Sex: Female

DRUGS (1)
  1. NEUPOGEN [Suspect]
     Indication: NEUTROPENIA
     Dates: start: 20081203, end: 20081209

REACTIONS (4)
  - BEDRIDDEN [None]
  - DYSPNOEA [None]
  - ERYTHEMA [None]
  - MUSCLE SPASMS [None]
